FAERS Safety Report 5815837-1 (Version None)
Quarter: 2008Q3

REPORT INFORMATION
  Report Type: 
  Country: None (occurrence: None)
  Receive Date: 20080721
  Receipt Date: 20080709
  Transmission Date: 20090109
  Serious: Yes (Other)
  Sender: FDA-Public Use
  Company Number: US-JNJFOC-20080702846

PATIENT
  Age: 65 Year
  Sex: Female

DRUGS (4)
  1. REMICADE [Suspect]
     Route: 042
  2. REMICADE [Suspect]
     Indication: ANKYLOSING SPONDYLITIS
     Route: 042
  3. OXYCODEINE [Concomitant]
     Indication: PAIN
  4. MORPHINE [Concomitant]
     Indication: PAIN

REACTIONS (2)
  - INTERVERTEBRAL DISC PROTRUSION [None]
  - PAIN [None]
